FAERS Safety Report 17430790 (Version 3)
Quarter: 2020Q2

REPORT INFORMATION
  Report Type: Report from Study
  Country: PA (occurrence: PA)
  Receive Date: 20200218
  Receipt Date: 20200522
  Transmission Date: 20200713
  Serious: Yes (Life-Threatening)
  Sender: FDA-Public Use
  Company Number: NVSC2019PA074171

PATIENT
  Age: 44 Year
  Sex: Female

DRUGS (1)
  1. GILENYA [Suspect]
     Active Substance: FINGOLIMOD HYDROCHLORIDE
     Indication: MULTIPLE SCLEROSIS
     Dosage: 0.5 MG, QD
     Route: 048
     Dates: start: 20191206

REACTIONS (12)
  - Violence-related symptom [Unknown]
  - Headache [Unknown]
  - Metamorphopsia [Unknown]
  - Chest discomfort [Unknown]
  - Self-injurious ideation [Unknown]
  - Pain [Recovering/Resolving]
  - Malaise [Not Recovered/Not Resolved]
  - Hiccups [Unknown]
  - Anger [Unknown]
  - Vision blurred [Recovering/Resolving]
  - Cardiac disorder [Unknown]
  - Cough [Unknown]

NARRATIVE: CASE EVENT DATE: 20191214
